FAERS Safety Report 15556522 (Version 1)
Quarter: 2018Q4

REPORT INFORMATION
  Report Type: Spontaneous
  Country: US (occurrence: US)
  Receive Date: 20181026
  Receipt Date: 20181026
  Transmission Date: 20190205
  Serious: Yes (Death, Hospitalization, Other)
  Sender: FDA-Public Use
  Company Number: US-TESARO-2018-TSO1329-US

PATIENT
  Age: 83 Year
  Sex: Female
  Weight: 64.85 kg

DRUGS (1)
  1. NIRAPARIB [Suspect]
     Active Substance: NIRAPARIB
     Indication: OVARIAN CANCER STAGE III
     Dosage: 300 MG, QD
     Dates: start: 20170616, end: 201707

REACTIONS (13)
  - Sepsis [Fatal]
  - Haematochezia [Fatal]
  - Haematuria [Fatal]
  - Pneumonia [Fatal]
  - Haematoma [Fatal]
  - Protein deficiency [Fatal]
  - Thrombocytopenia [Fatal]
  - Neutropenia [Fatal]
  - Oral candidiasis [Fatal]
  - Odynophagia [Fatal]
  - Escherichia urinary tract infection [Fatal]
  - Septic shock [Fatal]
  - Respiratory failure [Fatal]

NARRATIVE: CASE EVENT DATE: 2017
